FAERS Safety Report 8985624 (Version 2)
Quarter: 2013Q1

REPORT INFORMATION
  Report Type: Spontaneous
  Country: GB (occurrence: GB)
  Receive Date: 20121226
  Receipt Date: 20130125
  Transmission Date: 20140127
  Serious: Yes (Other)
  Sender: FDA-Public Use
  Company Number: GB-TEVA-377038ISR

PATIENT
  Age: 62 Year
  Sex: Male

DRUGS (6)
  1. AMIODARONE [Suspect]
     Indication: ARRHYTHMIA
     Dosage: 1800 MILLIGRAM DAILY; INITIALLY 600MG THREE TIMES A DAY REDUCED TO 200MG.
     Route: 065
     Dates: start: 200711
  2. AMIODARONE [Suspect]
     Route: 065
     Dates: end: 20120319
  3. BISOPROLOL [Concomitant]
     Route: 065
  4. SIMVASTATIN [Concomitant]
     Dosage: 40 MILLIGRAM DAILY;
     Route: 065
  5. ADCAL-D3 [Concomitant]
     Indication: BONE DISORDER
     Route: 065
  6. WARFARIN [Concomitant]
     Dosage: 4-5 TABLETS DAILY.

REACTIONS (8)
  - Vision blurred [Not Recovered/Not Resolved]
  - Blindness [Not Recovered/Not Resolved]
  - Optic nerve infarction [Not Recovered/Not Resolved]
  - Erythema [Not Recovered/Not Resolved]
  - Paraesthesia [Not Recovered/Not Resolved]
  - Glossodynia [Unknown]
  - Drug ineffective [Unknown]
  - Gingival bleeding [Recovered/Resolved]
